FAERS Safety Report 4538355-X (Version None)
Quarter: 2004Q4

REPORT INFORMATION
  Report Type: 
  Country: None (occurrence: None)
  Receive Date: 20041217
  Receipt Date: 20041201
  Transmission Date: 20050328
  Serious: Yes (Disabling)
  Sender: FDA-Public Use
  Company Number: WAES 0412FRA00011

PATIENT
  Age: 52 Year
  Sex: Male

DRUGS (5)
  1. CRIXIVAN [Suspect]
     Indication: HIV INFECTION
     Dosage: 800 MG/ TID PO
     Route: 048
     Dates: start: 19961101, end: 19980401
  2. CAP SAQUINAVIR [Suspect]
     Indication: HIV INFECTION
     Dosage: PO
     Route: 048
     Dates: start: 19960301, end: 19961101
  3. TAB NELFINAVIR MESYLATE [Suspect]
     Indication: HIV INFECTION
     Dosage: 2250 MG PO
     Route: 048
     Dates: start: 19980401, end: 19990901
  4. TAB DIDANOSINE [Suspect]
     Indication: HIV INFECTION
     Dosage: 400 MG/DAILY PO
     Route: 048
     Dates: start: 19980401
  5. CAP STAVUDINE [Suspect]
     Indication: HIV INFECTION
     Dosage: 40 MG/ BID PO
     Route: 048
     Dates: start: 19980401

REACTIONS (7)
  - ASEPTIC NECROSIS BONE [None]
  - BLOOD CHOLESTEROL INCREASED [None]
  - BLOOD GLUCOSE INCREASED [None]
  - BLOOD LACTIC ACID INCREASED [None]
  - BLOOD TRIGLYCERIDES INCREASED [None]
  - CD4 LYMPHOCYTES DECREASED [None]
  - VIRAL LOAD INCREASED [None]
